FAERS Safety Report 24912595 (Version 2)
Quarter: 2025Q1

REPORT INFORMATION
  Report Type: Report from Study
  Country: JP (occurrence: JP)
  Receive Date: 20250131
  Receipt Date: 20250318
  Transmission Date: 20250409
  Serious: Yes (Death)
  Sender: SHIONOGI
  Company Number: JP-shionogi-202500001124

PATIENT
  Age: 12 Year
  Sex: Female
  Weight: 56 kg

DRUGS (23)
  1. CEFIDEROCOL [Suspect]
     Active Substance: CEFIDEROCOL
     Indication: Bacteraemia
     Route: 041
     Dates: start: 20250104, end: 20250116
  2. CEFIDEROCOL [Suspect]
     Active Substance: CEFIDEROCOL
     Indication: Necrotising fasciitis
  3. AMIKACIN [Concomitant]
     Active Substance: AMIKACIN
     Indication: Product used for unknown indication
     Route: 065
     Dates: start: 20250101, end: 20250106
  4. CIPROFLOXACIN [Concomitant]
     Active Substance: CIPROFLOXACIN
     Indication: Bacteraemia
     Route: 065
     Dates: start: 20250104, end: 20250116
  5. CIPROFLOXACIN [Concomitant]
     Active Substance: CIPROFLOXACIN
     Indication: Necrotising fasciitis
  6. VANCOMYCIN [Concomitant]
     Active Substance: VANCOMYCIN
     Indication: Bacteraemia
     Route: 065
     Dates: start: 20250106, end: 20250116
  7. VANCOMYCIN [Concomitant]
     Active Substance: VANCOMYCIN
     Indication: Necrotising fasciitis
  8. URSO [RIBOFLAVIN;THIAMINE HYDROCHLORIDE;URSODEOXYCHOLIC ACID] [Concomitant]
     Indication: Haemophagocytic lymphohistiocytosis
     Route: 048
     Dates: end: 20250116
  9. POTASSIUM GLUCONATE [Concomitant]
     Active Substance: POTASSIUM GLUCONATE
     Indication: Haemophagocytic lymphohistiocytosis
     Route: 048
     Dates: end: 20250116
  10. PEROSPIRONE [Concomitant]
     Active Substance: PEROSPIRONE
     Indication: Haemophagocytic lymphohistiocytosis
     Route: 048
     Dates: end: 20250116
  11. RUXOLITINIB [Concomitant]
     Active Substance: RUXOLITINIB
     Indication: Haemophagocytic lymphohistiocytosis
     Route: 048
     Dates: end: 20250116
  12. TRAZODONE [Concomitant]
     Active Substance: TRAZODONE HYDROCHLORIDE
     Indication: Haemophagocytic lymphohistiocytosis
     Route: 048
     Dates: end: 20250116
  13. DAYVIGO [Concomitant]
     Active Substance: LEMBOREXANT
     Indication: Haemophagocytic lymphohistiocytosis
     Route: 048
     Dates: end: 20250116
  14. PEMAFIBRATE [Concomitant]
     Active Substance: PEMAFIBRATE
     Indication: Haemophagocytic lymphohistiocytosis
     Route: 048
     Dates: end: 20250116
  15. BEZAFIBRATE [Concomitant]
     Active Substance: BEZAFIBRATE
     Indication: Haemophagocytic lymphohistiocytosis
     Route: 048
     Dates: end: 20250116
  16. FLUDARA [Concomitant]
     Active Substance: FLUDARABINE PHOSPHATE
     Indication: Haemophagocytic lymphohistiocytosis
     Route: 065
     Dates: start: 20250110, end: 20250114
  17. NEUART [Concomitant]
     Active Substance: ANTITHROMBIN III HUMAN
     Indication: Haemophagocytic lymphohistiocytosis
     Route: 065
     Dates: start: 20250110, end: 20250115
  18. RASBURICASE [Concomitant]
     Active Substance: RASBURICASE
     Indication: Haemophagocytic lymphohistiocytosis
     Route: 065
     Dates: start: 20250110, end: 20250112
  19. CANRENOATE POTASSIUM [Concomitant]
     Active Substance: CANRENOATE POTASSIUM
     Indication: Haemophagocytic lymphohistiocytosis
     Route: 065
     Dates: start: 20250105, end: 20250114
  20. SOLU-MEDROL [Concomitant]
     Active Substance: METHYLPREDNISOLONE SODIUM SUCCINATE
     Indication: Haemophagocytic lymphohistiocytosis
     Route: 065
     Dates: start: 20250108, end: 20250115
  21. ALKERAN [Concomitant]
     Active Substance: MELPHALAN
     Indication: Haemophagocytic lymphohistiocytosis
     Route: 065
     Dates: start: 20250114, end: 20250115
  22. ACYCLOVIR [Concomitant]
     Active Substance: ACYCLOVIR
     Indication: Haemophagocytic lymphohistiocytosis
     Route: 065
     Dates: end: 20250115
  23. MICAFUNGIN SODIUM [Concomitant]
     Active Substance: MICAFUNGIN SODIUM
     Indication: Haemophagocytic lymphohistiocytosis
     Route: 065
     Dates: end: 20250115

REACTIONS (4)
  - Necrotising fasciitis [Fatal]
  - Bacteraemia [Fatal]
  - Haemophagocytic lymphohistiocytosis [Fatal]
  - Product administered to patient of inappropriate age [Unknown]
